FAERS Safety Report 13073009 (Version 2)
Quarter: 2017Q1

REPORT INFORMATION
  Report Type: Spontaneous
  Country: US (occurrence: US)
  Receive Date: 20161229
  Receipt Date: 20170220
  Transmission Date: 20170428
  Serious: No
  Sender: FDA-Public Use
  Company Number: US-LUNDBECK-DKLU2021110

PATIENT
  Age: 79 Year
  Sex: Male

DRUGS (3)
  1. NORTHERA [Suspect]
     Active Substance: DROXIDOPA
     Indication: PRODUCT USED FOR UNKNOWN INDICATION
     Route: 048
     Dates: start: 20161012
  2. PYRIDOSTIGMINE [Concomitant]
     Active Substance: PYRIDOSTIGMINE
     Indication: PRODUCT USED FOR UNKNOWN INDICATION
     Route: 065
  3. FLUDROCORTISONE ACETATE. [Concomitant]
     Active Substance: FLUDROCORTISONE ACETATE
     Indication: PRODUCT USED FOR UNKNOWN INDICATION
     Route: 065

REACTIONS (1)
  - Adverse drug reaction [Unknown]

NARRATIVE: CASE EVENT DATE: 20161011
